FAERS Safety Report 6558293-0 (Version None)
Quarter: 2010Q1

REPORT INFORMATION
  Report Type: 
  Country: None (occurrence: None)
  Receive Date: 20100129
  Receipt Date: 20100120
  Transmission Date: 20100710
  Serious: Yes (Hospitalization)
  Sender: FDA-Public Use
  Company Number: DE-ROCHE-681990

PATIENT
  Sex: Female
  Weight: 60 kg

DRUGS (16)
  1. TRASTUZUMAB [Suspect]
     Route: 042
     Dates: start: 20081114, end: 20090716
  2. ARIMIDEX [Suspect]
     Dosage: FREQUENCY DAILY
     Route: 048
     Dates: start: 20080806
  3. PANTOPRAZOLE [Concomitant]
     Indication: GASTRITIS
     Route: 042
     Dates: start: 20090525, end: 20090530
  4. PANTOPRAZOLE [Concomitant]
     Route: 042
     Dates: start: 20090612, end: 20090615
  5. METOCLOPRAMIDE [Concomitant]
     Indication: NAUSEA
     Dosage: DOSE: 20-25 DROPS
     Route: 048
     Dates: start: 20090525, end: 20090530
  6. SUCRALFATE [Concomitant]
     Dosage: TDD REPORTED AS BAG.
     Route: 048
     Dates: start: 20090612, end: 20090615
  7. SUCRALFATE [Concomitant]
     Dosage: DOSE: BAG, FREQUENCY THRICE.
     Route: 048
     Dates: start: 20090627
  8. RINGER'S INJECTION [Concomitant]
     Indication: FATIGUE
     Dosage: DRUG NAME RINGER LOG.
     Route: 042
     Dates: start: 20090525, end: 20090530
  9. RINGER'S INJECTION [Concomitant]
     Route: 042
     Dates: start: 20090612, end: 20090615
  10. RINGER'S INJECTION [Concomitant]
     Route: 042
     Dates: start: 20090627, end: 20090702
  11. SODIUM CHLORIDE [Concomitant]
     Indication: FATIGUE
     Dosage: DRUG NAME: NACL 9%
     Route: 042
     Dates: start: 20090612, end: 20090615
  12. SODIUM CHLORIDE [Concomitant]
     Route: 042
     Dates: start: 20090721, end: 20090723
  13. OMEPRAZOL [Concomitant]
     Route: 048
     Dates: start: 20090627
  14. OMEPRAZOL [Concomitant]
     Route: 048
     Dates: start: 20090721
  15. CLARITHROMYCIN [Concomitant]
     Indication: ANTI-INFECTIVE THERAPY
     Route: 048
     Dates: start: 20090627, end: 20090702
  16. METRONIDAZOL [Concomitant]
     Indication: ANTI-INFECTIVE THERAPY
     Route: 048
     Dates: start: 20090627, end: 20090702

REACTIONS (9)
  - ABDOMINAL PAIN UPPER [None]
  - DECREASED APPETITE [None]
  - DYSPEPSIA [None]
  - DYSPHAGIA [None]
  - FATIGUE [None]
  - GASTRITIS [None]
  - HAEMOPTYSIS [None]
  - NAUSEA [None]
  - VOMITING [None]
